FAERS Safety Report 5072985-4 (Version None)
Quarter: 2006Q3

REPORT INFORMATION
  Report Type: 
  Country: None (occurrence: None)
  Receive Date: 20060807
  Receipt Date: 20060712
  Transmission Date: 20061208
  Serious: Yes (Other)
  Sender: FDA-Public Use
  Company Number: AT-ABBOTT-06P-009-0338813-00

PATIENT
  Age: 67 Year
  Sex: Female
  Weight: 74 kg

DRUGS (10)
  1. ZEMPLAR [Suspect]
     Indication: HYPERPARATHYROIDISM SECONDARY
     Route: 042
     Dates: start: 20060316, end: 20060530
  2. ZEMPLAR [Suspect]
     Route: 042
     Dates: start: 20060711
  3. ALFACALCIDOL [Concomitant]
     Indication: HYPERPARATHYROIDISM SECONDARY
     Route: 065
     Dates: end: 20051201
  4. SEVELAMER HYDROCHLORIDE [Concomitant]
     Indication: HYPERPARATHYROIDISM SECONDARY
     Route: 065
     Dates: start: 20060601, end: 20060705
  5. ANTIPHOSPHAT [Concomitant]
     Indication: HYPERPHOSPHATAEMIA
     Route: 048
     Dates: start: 20060209
  6. LEVOTHYROXINE SODIUM [Concomitant]
     Indication: HYPOTHYROIDISM
     Route: 042
     Dates: start: 20050824
  7. REPAGLINIDE [Concomitant]
     Indication: DIABETES MELLITUS
     Route: 048
     Dates: start: 20060515
  8. PANTOPRAZOLE SODIUM [Concomitant]
     Indication: GASTRITIS
     Route: 048
     Dates: start: 20050916
  9. T-ASS [Concomitant]
     Indication: CORONARY ARTERY DISEASE
     Route: 048
     Dates: start: 20051201
  10. SIMVASTATIN [Concomitant]
     Indication: HYPERLIPIDAEMIA
     Route: 048
     Dates: start: 20051215

REACTIONS (2)
  - HYPERCALCAEMIA [None]
  - THERAPY CESSATION [None]
